FAERS Safety Report 7071128-5 (Version None)
Quarter: 2010Q4

REPORT INFORMATION
  Report Type: 
  Country: None (occurrence: None)
  Receive Date: 20101029
  Receipt Date: 20101022
  Transmission Date: 20110411
  Serious: No
  Sender: FDA-Public Use
  Company Number: US-PFIZER INC-2010135561

PATIENT
  Sex: Female

DRUGS (3)
  1. PROCARDIA [Suspect]
     Indication: HYPERTENSION
     Dosage: 30 MG, DAILY
     Dates: start: 20101021
  2. CALCIUM [Concomitant]
     Dosage: 1000 MG, UNK
  3. VITAMIN D [Concomitant]
     Dosage: 1000 MG, UNK

REACTIONS (1)
  - POLLAKIURIA [None]
